FAERS Safety Report 16182586 (Version 2)
Quarter: 2019Q2

REPORT INFORMATION
  Report Type: Spontaneous
  Country: GB (occurrence: GB)
  Receive Date: 20190411
  Receipt Date: 20190521
  Transmission Date: 20190711
  Serious: Yes (Death, Life-Threatening, Hospitalization)
  Sender: FDA-Public Use
  Company Number: GB-ROCHE-2300225

PATIENT
  Age: 73 Year
  Sex: Male
  Weight: 73.1 kg

DRUGS (63)
  1. RITUXIMAB. [Suspect]
     Active Substance: RITUXIMAB
  2. BENDAMUSTINE HYDROCHLORIDE. [Suspect]
     Active Substance: BENDAMUSTINE HYDROCHLORIDE
  3. BENDAMUSTINE HYDROCHLORIDE. [Suspect]
     Active Substance: BENDAMUSTINE HYDROCHLORIDE
  4. ALLOPURINOL. [Concomitant]
     Active Substance: ALLOPURINOL
  5. CARBOCISTEINE [Concomitant]
     Active Substance: CARBOCYSTEINE
  6. RITUXIMAB. [Suspect]
     Active Substance: RITUXIMAB
  7. BENDAMUSTINE HYDROCHLORIDE. [Suspect]
     Active Substance: BENDAMUSTINE HYDROCHLORIDE
  8. BENDAMUSTINE HYDROCHLORIDE. [Suspect]
     Active Substance: BENDAMUSTINE HYDROCHLORIDE
  9. ONDANSETRON [Concomitant]
     Active Substance: ONDANSETRON
     Dosage: UNK UNK, UNKNOWN FREQ.
     Route: 065
  10. ONDANSETRON [Concomitant]
     Active Substance: ONDANSETRON
  11. ONDANSETRON [Concomitant]
     Active Substance: ONDANSETRON
  12. PARACETAMOL [Concomitant]
     Active Substance: ACETAMINOPHEN
     Dosage: UNK UNK, UNKNOWN FREQ.
     Route: 065
  13. ALLOPURINOL. [Concomitant]
     Active Substance: ALLOPURINOL
     Dosage: UNK UNK, UNKNOWN FREQ.
     Route: 065
  14. ALLOPURINOL. [Concomitant]
     Active Substance: ALLOPURINOL
  15. RITUXIMAB. [Suspect]
     Active Substance: RITUXIMAB
  16. RITUXIMAB. [Suspect]
     Active Substance: RITUXIMAB
  17. CHLORPHENAMINE [Concomitant]
     Active Substance: CHLORPHENIRAMINE MALEATE
  18. PARACETAMOL [Concomitant]
     Active Substance: ACETAMINOPHEN
  19. PARACETAMOL [Concomitant]
     Active Substance: ACETAMINOPHEN
  20. PARACETAMOL [Concomitant]
     Active Substance: ACETAMINOPHEN
  21. ALLOPURINOL. [Concomitant]
     Active Substance: ALLOPURINOL
  22. ALLOPURINOL. [Concomitant]
     Active Substance: ALLOPURINOL
  23. ALLOPURINOL. [Concomitant]
     Active Substance: ALLOPURINOL
  24. CARBOCISTEINE [Concomitant]
     Active Substance: CARBOCYSTEINE
  25. RITUXIMAB. [Suspect]
     Active Substance: RITUXIMAB
  26. RITUXIMAB. [Suspect]
     Active Substance: RITUXIMAB
  27. BENDAMUSTINE HYDROCHLORIDE. [Suspect]
     Active Substance: BENDAMUSTINE HYDROCHLORIDE
     Route: 042
     Dates: start: 20190228, end: 20190305
  28. ONDANSETRON [Concomitant]
     Active Substance: ONDANSETRON
  29. ONDANSETRON [Concomitant]
     Active Substance: ONDANSETRON
  30. ONDANSETRON [Concomitant]
     Active Substance: ONDANSETRON
  31. CHLORPHENAMINE [Concomitant]
     Active Substance: CHLORPHENIRAMINE MALEATE
  32. PARACETAMOL [Concomitant]
     Active Substance: ACETAMINOPHEN
  33. ALLOPURINOL. [Concomitant]
     Active Substance: ALLOPURINOL
  34. CARBOCISTEINE [Concomitant]
     Active Substance: CARBOCYSTEINE
  35. RITUXIMAB. [Suspect]
     Active Substance: RITUXIMAB
  36. BENDAMUSTINE HYDROCHLORIDE. [Suspect]
     Active Substance: BENDAMUSTINE HYDROCHLORIDE
  37. CHLORPHENAMINE [Concomitant]
     Active Substance: CHLORPHENIRAMINE MALEATE
  38. CHLORPHENAMINE [Concomitant]
     Active Substance: CHLORPHENIRAMINE MALEATE
  39. CHLORPHENAMINE [Concomitant]
     Active Substance: CHLORPHENIRAMINE MALEATE
  40. CARBOCISTEINE [Concomitant]
     Active Substance: CARBOCYSTEINE
  41. BENDAMUSTINE HYDROCHLORIDE. [Suspect]
     Active Substance: BENDAMUSTINE HYDROCHLORIDE
  42. ONDANSETRON [Concomitant]
     Active Substance: ONDANSETRON
  43. CHLORPHENAMINE [Concomitant]
     Active Substance: CHLORPHENIRAMINE MALEATE
  44. CHLORPHENAMINE [Concomitant]
     Active Substance: CHLORPHENIRAMINE MALEATE
  45. PARACETAMOL [Concomitant]
     Active Substance: ACETAMINOPHEN
  46. ALLOPURINOL. [Concomitant]
     Active Substance: ALLOPURINOL
  47. ALLOPURINOL. [Concomitant]
     Active Substance: ALLOPURINOL
  48. CARBOCISTEINE [Concomitant]
     Active Substance: CARBOCYSTEINE
  49. RITUXIMAB. [Suspect]
     Active Substance: RITUXIMAB
  50. BENDAMUSTINE HYDROCHLORIDE. [Suspect]
     Active Substance: BENDAMUSTINE HYDROCHLORIDE
  51. CHLORPHENAMINE [Concomitant]
     Active Substance: CHLORPHENIRAMINE MALEATE
     Dosage: UNK UNK, UNKNOWN FREQ.
     Route: 065
  52. PARACETAMOL [Concomitant]
     Active Substance: ACETAMINOPHEN
  53. PARACETAMOL [Concomitant]
     Active Substance: ACETAMINOPHEN
  54. CARBOCISTEINE [Concomitant]
     Active Substance: CARBOCYSTEINE
  55. CARBOCISTEINE [Concomitant]
     Active Substance: CARBOCYSTEINE
  56. RITUXIMAB. [Suspect]
     Active Substance: RITUXIMAB
     Dosage: 700 MG, UNKNOWN FREQ.
     Route: 042
     Dates: start: 20190228, end: 20190304
  57. BENDAMUSTINE HYDROCHLORIDE. [Suspect]
     Active Substance: BENDAMUSTINE HYDROCHLORIDE
  58. ONDANSETRON [Concomitant]
     Active Substance: ONDANSETRON
  59. ONDANSETRON [Concomitant]
     Active Substance: ONDANSETRON
  60. CHLORPHENAMINE [Concomitant]
     Active Substance: CHLORPHENIRAMINE MALEATE
  61. PARACETAMOL [Concomitant]
     Active Substance: ACETAMINOPHEN
  62. CARBOCISTEINE [Concomitant]
     Active Substance: CARBOCYSTEINE
     Dosage: UNK UNK, UNKNOWN FREQ.
     Route: 065
  63. CARBOCISTEINE [Concomitant]
     Active Substance: CARBOCYSTEINE

REACTIONS (7)
  - Confusional state [Fatal]
  - Tachypnoea [Fatal]
  - Tachycardia [Fatal]
  - Pneumonia [Fatal]
  - Dyspnoea [Fatal]
  - Hypotension [Fatal]
  - Sepsis [Fatal]

NARRATIVE: CASE EVENT DATE: 20190307
